FAERS Safety Report 7881133-4 (Version None)
Quarter: 2011Q4

REPORT INFORMATION
  Report Type: 
  Country: None (occurrence: None)
  Receive Date: 20111101
  Receipt Date: 20110606
  Transmission Date: 20120403
  Serious: No
  Sender: FDA-Public Use
  Company Number: US-AMGEN-USASP2011029177

PATIENT
  Sex: Female
  Weight: 68.027 kg

DRUGS (5)
  1. ENBREL [Suspect]
     Indication: PSORIATIC ARTHROPATHY
  2. HUMIRA [Concomitant]
     Dosage: UNK UNK, Q2WK
     Dates: start: 20110401
  3. VITAMINS                           /90003601/ [Concomitant]
  4. MELOXICAM [Concomitant]
     Dosage: 15 MG, UNK
  5. ASPIRIN [Concomitant]
     Dosage: 81 MG, UNK

REACTIONS (3)
  - OEDEMA PERIPHERAL [None]
  - SARCOIDOSIS [None]
  - PAIN IN EXTREMITY [None]
